FAERS Safety Report 14023790 (Version 1)
Quarter: 2017Q3

REPORT INFORMATION
  Report Type: Spontaneous
  Country: US (occurrence: US)
  Receive Date: 20170929
  Receipt Date: 20170929
  Transmission Date: 20171128
  Serious: No
  Sender: FDA-Public Use
  Company Number: US-JUBILANT CADISTA PHARMACEUTICALS-2016JUB00328

PATIENT
  Age: 65 Year
  Sex: Female
  Weight: 63.49 kg

DRUGS (11)
  1. PREDNISONE. [Suspect]
     Active Substance: PREDNISONE
     Indication: PAIN
     Dosage: 0.5 TABLETS, EVERY 4 OR 5 DAYS
     Route: 048
     Dates: start: 2014
  2. PREDNISONE. [Suspect]
     Active Substance: PREDNISONE
     Dosage: 0.75 UNK, UNK
  3. VALIUM [Concomitant]
     Active Substance: DIAZEPAM
     Dosage: 10 MG, 1X/DAY
  4. LATUDA [Concomitant]
     Active Substance: LURASIDONE HYDROCHLORIDE
     Dosage: 40 MG, UNK
     Dates: start: 201609
  5. ATIVAN [Concomitant]
     Active Substance: LORAZEPAM
     Dosage: 2 MG, 1X/DAY
     Dates: start: 2014
  6. ZINC. [Concomitant]
     Active Substance: ZINC
  7. VITAMIN B [Concomitant]
     Active Substance: VITAMIN B
  8. NORCO [Concomitant]
     Active Substance: ACETAMINOPHEN\HYDROCODONE BITARTRATE
     Dosage: 1 TABLETS, 1X/DAY
  9. NEURONTIN [Concomitant]
     Active Substance: GABAPENTIN
     Dosage: UNK, 1X/DAY
     Dates: start: 2015
  10. ATENOLOL. [Concomitant]
     Active Substance: ATENOLOL
     Dosage: 25 MG, 1X/DAY
  11. FETZIMA [Concomitant]
     Active Substance: LEVOMILNACIPRAN HYDROCHLORIDE
     Dosage: 80 MG, 1X/DAY
     Dates: start: 2015

REACTIONS (8)
  - Nausea [Unknown]
  - Lymphadenopathy [Unknown]
  - Mobility decreased [Unknown]
  - Back pain [Not Recovered/Not Resolved]
  - Dysphagia [Not Recovered/Not Resolved]
  - Cardiac disorder [Unknown]
  - Fat tissue increased [Not Recovered/Not Resolved]
  - Pain [None]

NARRATIVE: CASE EVENT DATE: 2015
